FAERS Safety Report 8311636-X (Version None)
Quarter: 2012Q2

REPORT INFORMATION
  Report Type: 
  Country: None (occurrence: None)
  Receive Date: 20120425
  Receipt Date: 20120417
  Transmission Date: 20120825
  Serious: Yes (Other)
  Sender: FDA-Public Use
  Company Number: US-JNJFOC-20120409548

PATIENT
  Age: 12 Month

DRUGS (2)
  1. DOXORUBICIN HCL [Suspect]
     Indication: SARCOMA
     Route: 042
  2. TEMSIROLIMUS [Suspect]
     Indication: SARCOMA
     Route: 065

REACTIONS (1)
  - TOXICITY TO VARIOUS AGENTS [None]
